FAERS Safety Report 17099448 (Version 1)
Quarter: 2019Q4

REPORT INFORMATION
  Report Type: Spontaneous
  Country: DE (occurrence: DE)
  Receive Date: 20191202
  Receipt Date: 20191202
  Transmission Date: 20200122
  Serious: Yes (Other)
  Sender: FDA-Public Use
  Company Number: DE-UCBSA-2019050992

PATIENT
  Age: 68 Year
  Sex: Male

DRUGS (4)
  1. NEUPRO [Suspect]
     Active Substance: ROTIGOTINE
     Dosage: 16 MILLIGRAM, ONCE DAILY (QD)
     Dates: start: 201410
  2. L DOPA [Concomitant]
     Active Substance: LEVODOPA
     Indication: PARKINSON^S DISEASE
     Dosage: 200 MILLIGRAM, ONCE DAILY (QD)
  3. NEUPRO [Suspect]
     Active Substance: ROTIGOTINE
     Indication: PARKINSON^S DISEASE
     Dosage: 14 MILLIGRAM, ONCE DAILY (QD)
     Dates: start: 201308
  4. AZILECT [Concomitant]
     Active Substance: RASAGILINE MESYLATE
     Indication: PARKINSON^S DISEASE
     Dosage: 1 MILLIGRAM, ONCE DAILY (QD)

REACTIONS (3)
  - Camptocormia [Unknown]
  - Fall [Unknown]
  - Fracture [Unknown]
